FAERS Safety Report 7098873-X (Version None)
Quarter: 2010Q4

REPORT INFORMATION
  Report Type: 
  Country: None (occurrence: None)
  Receive Date: 20101112
  Receipt Date: 20101108
  Transmission Date: 20110411
  Serious: Yes (Death, Hospitalization)
  Sender: FDA-Public Use
  Company Number: NO-PFIZER INC-2010133155

PATIENT
  Sex: Male

DRUGS (3)
  1. SUTENT [Suspect]
     Indication: RENAL CANCER METASTATIC
     Dosage: 50 MG, 1X/DAY
     Dates: start: 20100920, end: 20101018
  2. MEDROL [Concomitant]
     Indication: INTRACRANIAL PRESSURE INCREASED
     Dosage: 8 MG, 3X/DAY
     Dates: start: 20100701
  3. SOMAC [Concomitant]
     Indication: PROPHYLAXIS AGAINST GASTROINTESTINAL ULCER
     Dosage: 40 MG, 1X/DAY
     Dates: start: 20100701

REACTIONS (7)
  - CONSTIPATION [None]
  - DIARRHOEA [None]
  - DISEASE PROGRESSION [None]
  - ECCHYMOSIS [None]
  - HYPOTONIA [None]
  - MOUTH ULCERATION [None]
  - RENAL CANCER METASTATIC [None]
